FAERS Safety Report 8218091-9 (Version None)
Quarter: 2012Q1

REPORT INFORMATION
  Report Type: 
  Country: None (occurrence: None)
  Receive Date: 20120316
  Receipt Date: 20120316
  Transmission Date: 20120608
  Serious: Yes (Other)
  Sender: FDA-Public Use
  Company Number: None

PATIENT
  Age: 21 Year
  Sex: Male
  Weight: 81.6475 kg

DRUGS (3)
  1. TYLENOL (CAPLET) [Suspect]
     Indication: PRODUCT USED FOR UNKNOWN INDICATION
     Dosage: DAILY UNSPECIFIED ORAL
     Route: 048
  2. SUDACARE SHOWER SOOTHERS (OTHER NON-THERAPEUTIC PRODUCTS) TABLET [Suspect]
     Indication: NASOPHARYNGITIS
     Dates: start: 20070127, end: 20070127
  3. AMOXICILLIN [Concomitant]

REACTIONS (1)
  - NO ADVERSE EVENT [None]
